FAERS Safety Report 12111198 (Version 1)
Quarter: 2016Q1

REPORT INFORMATION
  Report Type: Spontaneous
  Country: US (occurrence: US)
  Receive Date: 20160224
  Receipt Date: 20160224
  Transmission Date: 20160526
  Serious: Yes (Hospitalization)
  Sender: FDA-Public Use
  Company Number: US-JAZZ-2015-US-009598

PATIENT
  Age: 41 Year
  Sex: Male

DRUGS (4)
  1. PRIALT [Suspect]
     Active Substance: ZICONOTIDE ACETATE
     Indication: PAIN
     Dosage: 0.009 ?G, QH
     Route: 037
  2. FENTANYL. [Suspect]
     Active Substance: FENTANYL
     Indication: PAIN
     Dosage: 17.137 ?G, QH
     Route: 037
  3. FENTANYL. [Suspect]
     Active Substance: FENTANYL
     Indication: COMPLEX REGIONAL PAIN SYNDROME
  4. PRIALT [Suspect]
     Active Substance: ZICONOTIDE ACETATE
     Indication: COMPLEX REGIONAL PAIN SYNDROME

REACTIONS (4)
  - Pyrexia [Unknown]
  - Drug withdrawal syndrome [Unknown]
  - Drug ineffective [Unknown]
  - Device issue [Unknown]

NARRATIVE: CASE EVENT DATE: 20150621
